FAERS Safety Report 5782377-8 (Version None)
Quarter: 2008Q2

REPORT INFORMATION
  Report Type: 
  Country: None (occurrence: None)
  Receive Date: 20080623
  Receipt Date: 20071206
  Transmission Date: 20081010
  Serious: Yes (Hospitalization)
  Sender: FDA-Public Use
  Company Number: US-AMGEN-QUU252372

PATIENT
  Sex: Male
  Weight: 75.8 kg

DRUGS (11)
  1. ARANESP [Suspect]
     Indication: RENAL FAILURE CHRONIC
     Dates: start: 20070103
  2. EPOGEN [Concomitant]
     Indication: ANAEMIA
     Dates: start: 20070901
  3. LISINOPRIL [Concomitant]
     Route: 048
  4. ZANTAC [Concomitant]
     Route: 048
  5. SULFASALAZINE [Concomitant]
     Route: 048
  6. VALIUM [Concomitant]
     Route: 048
  7. FOLIC ACID [Concomitant]
     Route: 048
  8. VITAMIN B-12 [Concomitant]
     Route: 030
  9. NIFEREX [Concomitant]
     Route: 048
  10. UNSPECIFIED MEDICATION [Concomitant]
     Route: 054
  11. MESALAMINE [Concomitant]
     Dates: start: 20071001

REACTIONS (3)
  - CEREBROVASCULAR ACCIDENT [None]
  - DIZZINESS [None]
  - WEIGHT DECREASED [None]
